FAERS Safety Report 14484984 (Version 1)
Quarter: 2018Q1

REPORT INFORMATION
  Report Type: Spontaneous
  Country: JP (occurrence: JP)
  Receive Date: 20180205
  Receipt Date: 20180205
  Transmission Date: 20180509
  Serious: Yes (Hospitalization)
  Sender: FDA-Public Use
  Company Number: JP-SA-2018SA027103

PATIENT
  Age: 58 Year
  Sex: Male

DRUGS (1)
  1. BCG FOR IMMUNOTHERAPY [Suspect]
     Active Substance: BACILLUS CALMETTE-GUERIN ANTIGEN, UNSPECIFIED SUBSTRAIN
     Indication: BLADDER CANCER
     Dosage: SECOND COURCE.
     Route: 043

REACTIONS (4)
  - Reiter^s syndrome [Recovered/Resolved]
  - Pyrexia [Recovered/Resolved]
  - Arthralgia [Recovered/Resolved]
  - Conjunctivitis [Recovered/Resolved]
